FAERS Safety Report 6367660-X (Version None)
Quarter: 2009Q3

REPORT INFORMATION
  Report Type: 
  Country: None (occurrence: None)
  Receive Date: 20090921
  Receipt Date: 20090914
  Transmission Date: 20100115
  Serious: Yes (Other)
  Sender: FDA-Public Use
  Company Number: US-JNJFOC-20090904678

PATIENT
  Age: 83 Year
  Sex: Female
  Weight: 68.04 kg

DRUGS (7)
  1. MONISTAT-3 COMBINATION PACK [Suspect]
     Route: 067
     Dates: start: 20090910, end: 20090913
  2. MONISTAT-3 COMBINATION PACK [Suspect]
     Indication: FUNGAL INFECTION
     Route: 067
     Dates: start: 20090910, end: 20090913
  3. MONISTAT-3 COMBINATION PACK [Suspect]
     Route: 061
     Dates: start: 20090910, end: 20090913
  4. MONISTAT-3 COMBINATION PACK [Suspect]
     Route: 061
     Dates: start: 20090910, end: 20090913
  5. UNSPECIFIED COPD MEDICATIONS [Concomitant]
     Route: 065
  6. UNKNOWN MEDICATION [Concomitant]
     Indication: CROHN'S DISEASE
     Route: 065
  7. ACID REFLUX MEDICATION [Concomitant]
     Indication: GASTROOESOPHAGEAL REFLUX DISEASE
     Route: 065

REACTIONS (2)
  - DIZZINESS [None]
  - INAPPROPRIATE SCHEDULE OF DRUG ADMINISTRATION [None]
